FAERS Safety Report 12246334 (Version 1)
Quarter: 2016Q2

REPORT INFORMATION
  Report Type: Spontaneous
  Country: US (occurrence: US)
  Receive Date: 20160407
  Receipt Date: 20160407
  Transmission Date: 20160815
  Serious: No
  Sender: FDA-Public Use
  Company Number: US-BAYER-2016-059099

PATIENT
  Age: 36 Year
  Sex: Female

DRUGS (7)
  1. AMITRIPTYLINE [Concomitant]
     Active Substance: AMITRIPTYLINE
  2. LYRICA [Suspect]
     Active Substance: PREGABALIN
     Dosage: 100 MG, TID
  3. NORCO [Concomitant]
     Active Substance: ACETAMINOPHEN\HYDROCODONE BITARTRATE
  4. VALIUM [Concomitant]
     Active Substance: DIAZEPAM
  5. ALEVE [Suspect]
     Active Substance: NAPROXEN SODIUM
  6. RANITIDINE. [Concomitant]
     Active Substance: RANITIDINE
  7. FLEXIN [FLAVOXATE HYDROCHLORIDE] [Concomitant]

REACTIONS (2)
  - Migraine [None]
  - Drug hypersensitivity [None]
